FAERS Safety Report 9739338 (Version 1)
Quarter: 2013Q4

REPORT INFORMATION
  Report Type: Spontaneous
  Country: US (occurrence: US)
  Receive Date: 20131209
  Receipt Date: 20131209
  Transmission Date: 20140711
  Serious: No
  Sender: FDA-Public Use
  Company Number: US-GLAXOSMITHKLINE-A1028509A

PATIENT
  Age: 19 Year
  Sex: Female

DRUGS (2)
  1. HYCAMTIN [Suspect]
     Indication: OVARIAN CANCER
     Dosage: .25MG UNKNOWN
     Route: 065
  2. VOTRIENT [Suspect]
     Indication: OVARIAN CANCER
     Dosage: 200MG UNKNOWN
     Route: 065

REACTIONS (1)
  - Drug ineffective [Unknown]
